FAERS Safety Report 24190979 (Version 1)
Quarter: 2024Q3

REPORT INFORMATION
  Report Type: Spontaneous
  Country: US (occurrence: US)
  Receive Date: 20240808
  Receipt Date: 20240808
  Transmission Date: 20241016
  Serious: Yes (Other)
  Sender: GLAXOSMITHKLINE
  Company Number: US-GSKCCFUS-Case-02069222_AE-114475

PATIENT

DRUGS (1)
  1. TRELEGY ELLIPTA [Suspect]
     Active Substance: FLUTICASONE FUROATE\UMECLIDINIUM BROMIDE\VILANTEROL TRIFENATATE
     Indication: Chronic obstructive pulmonary disease
     Dosage: UNK (200/62.5/25MCG)
     Route: 055

REACTIONS (5)
  - Atrial fibrillation [Unknown]
  - Cardiac disorder [Unknown]
  - Stenosis [Unknown]
  - Aneurysm [Unknown]
  - Product use issue [Unknown]
